FAERS Safety Report 14781504 (Version 2)
Quarter: 2018Q2

REPORT INFORMATION
  Report Type: Spontaneous
  Country: DE (occurrence: DE)
  Receive Date: 20180419
  Receipt Date: 20180504
  Transmission Date: 20180711
  Serious: Yes (Other)
  Sender: FDA-Public Use
  Company Number: FR-MERCK KGAA-2046097

PATIENT
  Sex: Female

DRUGS (9)
  1. LEVETIRACETAM. [Suspect]
     Active Substance: LEVETIRACETAM
     Dates: start: 201803
  2. DEKRISTOL [Suspect]
     Active Substance: CHOLECALCIFEROL
  3. MAGNESIUM [Suspect]
     Active Substance: MAGNESIUM
     Dates: start: 201712
  4. NOVOTHYROX [Suspect]
     Active Substance: LEVOTHYROXINE SODIUM
     Indication: THYROID OPERATION
     Dates: start: 1999
  5. PREDNISOLON [Suspect]
     Active Substance: PREDNISOLONE
     Dates: start: 201712
  6. MAXIM (CERTOSTAT) [Suspect]
     Active Substance: DIENOGEST\ETHINYL ESTRADIOL
     Route: 048
     Dates: start: 2012
  7. FOLIC ACID. [Suspect]
     Active Substance: FOLIC ACID
     Dates: start: 201712
  8. METHOTREXATE. [Suspect]
     Active Substance: METHOTREXATE
     Dates: start: 201712
  9. RANITIDIN [Suspect]
     Active Substance: RANITIDINE HYDROCHLORIDE
     Dates: start: 201712

REACTIONS (3)
  - Drug interaction [Unknown]
  - Noninfective encephalitis [Unknown]
  - Epilepsy [Unknown]

NARRATIVE: CASE EVENT DATE: 201712
